FAERS Safety Report 14179146 (Version 1)
Quarter: 2017Q4

REPORT INFORMATION
  Report Type: Spontaneous
  Country: US (occurrence: US)
  Receive Date: 20171110
  Receipt Date: 20171110
  Transmission Date: 20180321
  Serious: Yes (Hospitalization)
  Sender: FDA-Public Use
  Company Number: US-LPDUSPRD-20171539

PATIENT
  Sex: Male

DRUGS (1)
  1. PAMIDRONATE DISODIUM INJECTION (0745-01) [Suspect]
     Active Substance: PAMIDRONATE DISODIUM
     Dosage: 2 DIVIDED DOSES
     Route: 065

REACTIONS (2)
  - Urinary retention [Recovered/Resolved]
  - Serotonin syndrome [Recovered/Resolved]
